FAERS Safety Report 12606508 (Version 1)
Quarter: 2016Q3

REPORT INFORMATION
  Report Type: Spontaneous
  Country: US (occurrence: None)
  Receive Date: 20160728
  Receipt Date: 20160728
  Transmission Date: 20161109
  Serious: No
  Sender: FDA-Public Use
  Company Number: None

PATIENT
  Age: 21 Year
  Sex: Female
  Weight: 57.61 kg

DRUGS (1)
  1. INJECTAFER [Suspect]
     Active Substance: FERRIC CARBOXYMALTOSE
     Indication: ANAEMIA
     Route: 041
     Dates: start: 20160511, end: 20160518

REACTIONS (4)
  - Chest discomfort [None]
  - Headache [None]
  - Vision blurred [None]
  - Hypertension [None]

NARRATIVE: CASE EVENT DATE: 20160511
